FAERS Safety Report 24395304 (Version 3)
Quarter: 2024Q4

REPORT INFORMATION
  Report Type: Report from Study
  Country: CO (occurrence: CO)
  Receive Date: 20241004
  Receipt Date: 20241030
  Transmission Date: 20250114
  Serious: Yes (Hospitalization)
  Sender: RECORDATI
  Company Number: CO-RECORDATI RARE DISEASE INC.-2024007078

PATIENT

DRUGS (6)
  1. ISTURISA [Suspect]
     Active Substance: OSILODROSTAT PHOSPHATE
     Indication: Cushing^s syndrome
     Dosage: 2 MG, Q12H, WEEK 1 TO 3
     Route: 048
     Dates: start: 20240830, end: 20240922
  2. ISTURISA [Suspect]
     Active Substance: OSILODROSTAT PHOSPHATE
     Dosage: 3 MG IN THE MORNING AND 2 MG IN THE EVENING
     Route: 048
     Dates: start: 20240923, end: 20240926
  3. RISPERIDONE [Concomitant]
     Active Substance: RISPERIDONE
     Indication: Schizoaffective disorder
     Dosage: 2 MG, Q8H
  4. LITHIUM [Concomitant]
     Active Substance: LITHIUM
     Indication: Schizoaffective disorder
     Dosage: 1200 MG/DAY (300 MG)
  5. LOSARTAN [Concomitant]
     Active Substance: LOSARTAN
     Indication: Hypertension
     Dosage: 100 MG/DAY
  6. HYDROCHLOROTHIAZIDE [Concomitant]
     Active Substance: HYDROCHLOROTHIAZIDE
     Indication: Hypertension
     Dosage: 25 MG/DAY

REACTIONS (15)
  - Myasthenia gravis crisis [Not Recovered/Not Resolved]
  - Infection [Not Recovered/Not Resolved]
  - Septic shock [Unknown]
  - Craniocerebral injury [Unknown]
  - Rib fracture [Unknown]
  - Joint injury [Unknown]
  - Adrenal insufficiency [Unknown]
  - Fall [Recovering/Resolving]
  - Skin laceration [Unknown]
  - Tremor [Unknown]
  - Anal sphincter atony [Unknown]
  - Bladder sphincter atony [Unknown]
  - Asthenia [Unknown]
  - Decreased appetite [Unknown]
  - Disease progression [Recovered/Resolved]

NARRATIVE: CASE EVENT DATE: 20240101
